FAERS Safety Report 7920151-4 (Version None)
Quarter: 2011Q4

REPORT INFORMATION
  Report Type: 
  Country: None (occurrence: None)
  Receive Date: 20111117
  Receipt Date: 20111109
  Transmission Date: 20120403
  Serious: Yes (Other)
  Sender: FDA-Public Use
  Company Number: US-US-EMD SERONO, INC.-7095363

PATIENT
  Sex: Female

DRUGS (4)
  1. REBIF [Suspect]
     Indication: PRODUCT USED FOR UNKNOWN INDICATION
     Route: 058
     Dates: start: 20110831
  2. UNSPECIFIED MEDICATION [Concomitant]
     Indication: HYPERTENSION
  3. UNSPECIFIED MEDICATION [Concomitant]
     Indication: DEPRESSION
  4. UNSPECIFIED MEDICATION [Concomitant]
     Indication: ANXIETY

REACTIONS (4)
  - HYPERTENSION [None]
  - INJECTION SITE ERYTHEMA [None]
  - INJECTION SITE NODULE [None]
  - INFLUENZA LIKE ILLNESS [None]
